FAERS Safety Report 20454997 (Version 1)
Quarter: 2022Q1

REPORT INFORMATION
  Report Type: Spontaneous
  Country: CA (occurrence: CA)
  Receive Date: 20220210
  Receipt Date: 20220210
  Transmission Date: 20220424
  Serious: Yes (Hospitalization)
  Sender: FDA-Public Use
  Company Number: CA-TEVA-2022-CA-2006036

PATIENT
  Sex: Female

DRUGS (2)
  1. ONDANSETRON [Suspect]
     Active Substance: ONDANSETRON
     Indication: Product used for unknown indication
     Route: 065
  2. KETOROLAC [Concomitant]
     Active Substance: KETOROLAC TROMETHAMINE
     Route: 065

REACTIONS (7)
  - Depressed level of consciousness [Unknown]
  - Drug hypersensitivity [Unknown]
  - Hypertension [Unknown]
  - Muscle spasms [Unknown]
  - Rash [Unknown]
  - Tachypnoea [Unknown]
  - Unresponsive to stimuli [Unknown]
